FAERS Safety Report 9039363 (Version 1)
Quarter: 2013Q1

REPORT INFORMATION
  Report Type: Spontaneous
  Country: US (occurrence: None)
  Receive Date: 20130122
  Receipt Date: 20130122
  Transmission Date: 20140127
  Serious: Yes (Hospitalization)
  Sender: FDA-Public Use
  Company Number: None

PATIENT
  Sex: Male

DRUGS (3)
  1. PEGASYS [Suspect]
     Indication: HEPATITIS C
  2. RIBAPAK [Suspect]
     Dosage: SQ_600MG BID
     Route: 058
  3. INCIVEK [Suspect]
     Dosage: ORAL750MG TID ORAL
     Route: 048

REACTIONS (3)
  - Rash [None]
  - Pain [None]
  - Pyrexia [None]
